FAERS Safety Report 7510949-9 (Version None)
Quarter: 2011Q2

REPORT INFORMATION
  Report Type: 
  Country: None (occurrence: None)
  Receive Date: 20110531
  Receipt Date: 20110524
  Transmission Date: 20111010
  Serious: No
  Sender: FDA-Public Use
  Company Number: US-PFIZER INC-2011113534

PATIENT
  Sex: Female

DRUGS (1)
  1. XANAX [Suspect]
     Dosage: 1 MG, 4X/DAY
     Route: 048
     Dates: start: 20080101

REACTIONS (1)
  - DYSPEPSIA [None]
